FAERS Safety Report 4515159-5 (Version None)
Quarter: 2004Q4

REPORT INFORMATION
  Report Type: 
  Country: None (occurrence: None)
  Receive Date: 20041130
  Receipt Date: 20041130
  Transmission Date: 20050328
  Serious: No
  Sender: FDA-Public Use
  Company Number: None

PATIENT
  Age: 56 Year
  Sex: Female
  Weight: 116.1208 kg

DRUGS (5)
  1. ENBREL [Suspect]
     Indication: RHEUMATOID ARTHRITIS
     Dosage: 25 MG 2X/WEEK SQ
     Route: 058
     Dates: start: 20030711
  2. PREDNISONE [Concomitant]
  3. TOPROL-XL [Concomitant]
  4. HYDROXYCHLOROQUINE [Concomitant]
  5. LOTREL [Concomitant]

REACTIONS (2)
  - CONDITION AGGRAVATED [None]
  - GLOMERULONEPHRITIS FOCAL [None]
